FAERS Safety Report 4683185-1 (Version None)
Quarter: 2005Q2

REPORT INFORMATION
  Report Type: 
  Country: None (occurrence: None)
  Receive Date: 20050602
  Receipt Date: 20050309
  Transmission Date: 20051028
  Serious: No
  Sender: FDA-Public Use
  Company Number: USA050392851

PATIENT
  Age: 76 Year
  Sex: Male
  Weight: 82 kg

DRUGS (7)
  1. CYMBALTA [Suspect]
     Indication: NEUROPATHIC PAIN
     Dosage: 20 MG AT BEDTIME
     Dates: start: 20050101
  2. CYMBALTA [Suspect]
     Indication: NEUROPATHY PERIPHERAL
     Dosage: 20 MG AT BEDTIME
     Dates: start: 20050101
  3. AMBIEN [Concomitant]
  4. LORAZEPAM [Concomitant]
  5. LOVASTATIN [Concomitant]
  6. COZAAR [Concomitant]
  7. VITAMINS [Concomitant]

REACTIONS (2)
  - DISORIENTATION [None]
  - DISSOCIATION [None]
